FAERS Safety Report 14583351 (Version 1)
Quarter: 2018Q1

REPORT INFORMATION
  Report Type: Spontaneous
  Country: US (occurrence: US)
  Receive Date: 20180228
  Receipt Date: 20180228
  Transmission Date: 20180509
  Serious: Yes (Other)
  Sender: FDA-Public Use
  Company Number: US-OTSUKA-DJ201308101

PATIENT

DRUGS (1)
  1. ABILIFY [Suspect]
     Active Substance: ARIPIPRAZOLE
     Route: 065

REACTIONS (4)
  - Dizziness [Unknown]
  - Disorientation [Unknown]
  - Disturbance in attention [Unknown]
  - Neck injury [Unknown]

NARRATIVE: CASE EVENT DATE: 201010
